FAERS Safety Report 24607355 (Version 2)
Quarter: 2024Q4

REPORT INFORMATION
  Report Type: Spontaneous
  Country: AU (occurrence: AU)
  Receive Date: 20241112
  Receipt Date: 20241206
  Transmission Date: 20250115
  Serious: Yes (Death, Other)
  Sender: LUPIN
  Company Number: AU-LUPIN PHARMACEUTICALS INC.-2024-11022

PATIENT
  Age: 47 Year
  Sex: Male

DRUGS (3)
  1. PREGABALIN [Interacting]
     Active Substance: PREGABALIN
     Indication: Product used for unknown indication
     Dosage: UNK
     Route: 065
  2. TRAMADOL HYDROCHLORIDE [Interacting]
     Active Substance: TRAMADOL HYDROCHLORIDE
     Indication: Product used for unknown indication
     Dosage: UNK
     Route: 065
  3. DIAZEPAM [Interacting]
     Active Substance: DIAZEPAM
     Indication: Product used for unknown indication
     Dosage: UNK
     Route: 065

REACTIONS (4)
  - Drug interaction [Fatal]
  - Accidental overdose [Unknown]
  - Pneumonia aspiration [Fatal]
  - Toxicity to various agents [Fatal]

NARRATIVE: CASE EVENT DATE: 20230119
